FAERS Safety Report 7759477-6 (Version None)
Quarter: 2011Q3

REPORT INFORMATION
  Report Type: 
  Country: None (occurrence: None)
  Receive Date: 20110919
  Receipt Date: 20110919
  Transmission Date: 20111222
  Serious: Yes (Other)
  Sender: FDA-Public Use
  Company Number: None

PATIENT
  Age: 40 Year
  Sex: Female
  Weight: 62.595 kg

DRUGS (2)
  1. SINGULAIR [Suspect]
     Indication: RHINITIS ALLERGIC
     Dosage: 30MG
     Route: 048
     Dates: start: 20110501, end: 20110909
  2. SINGULAIR [Suspect]
     Indication: ASTHMA
     Dosage: 30MG
     Route: 048
     Dates: start: 20110501, end: 20110909

REACTIONS (5)
  - SLEEP DISORDER [None]
  - FATIGUE [None]
  - DEPRESSION SUICIDAL [None]
  - HYPOAESTHESIA [None]
  - CONFUSIONAL STATE [None]
